FAERS Safety Report 8465686-3 (Version None)
Quarter: 2012Q2

REPORT INFORMATION
  Report Type: 
  Country: None (occurrence: None)
  Receive Date: 20120619
  Receipt Date: 20120615
  Transmission Date: 20120825
  Serious: Yes (Other)
  Sender: FDA-Public Use
  Company Number: ADR-2011-10654

PATIENT
  Sex: Female

DRUGS (1)
  1. LIORESAL [Suspect]
     Indication: MUSCLE SPASTICITY
     Dosage: 498 MCG, DAILY, INTRATH
     Route: 037

REACTIONS (4)
  - INJURY [None]
  - CHOLECYSTECTOMY [None]
  - DEVICE INVERSION [None]
  - PROCEDURAL COMPLICATION [None]
